FAERS Safety Report 22222599 (Version 1)
Quarter: 2023Q2

REPORT INFORMATION
  Report Type: Spontaneous
  Country: US (occurrence: None)
  Receive Date: 20230417
  Receipt Date: 20230417
  Transmission Date: 20230722
  Serious: Yes (Disabling, Other)
  Sender: FDA-Public Use
  Company Number: None

PATIENT
  Age: 36 Year
  Sex: Female
  Weight: 220 kg

DRUGS (15)
  1. ABILIFY [Suspect]
     Active Substance: ARIPIPRAZOLE
     Indication: Suicidal ideation
     Dosage: OTHER QUANTITY : 1 TABLET(S);?FREQUENCY : DAILY;?
     Route: 048
     Dates: start: 20220511, end: 20220720
  2. RABEPRAZOLE [Concomitant]
     Active Substance: RABEPRAZOLE
  3. BUSPIRONE [Concomitant]
     Active Substance: BUSPIRONE HYDROCHLORIDE
  4. METOPROLOL [Concomitant]
     Active Substance: METOPROLOL
  5. GABAPENTIN [Concomitant]
     Active Substance: GABAPENTIN
  6. ASPIRIN [Concomitant]
     Active Substance: ASPIRIN
  7. ATORVASTATIN [Concomitant]
     Active Substance: ATORVASTATIN
  8. NORETHINDRONE [Concomitant]
     Active Substance: NORETHINDRONE
  9. METFORMIN [Concomitant]
     Active Substance: METFORMIN HYDROCHLORIDE
  10. VIIBRYD [Concomitant]
     Active Substance: VILAZODONE HYDROCHLORIDE
  11. OZEMPIC [Concomitant]
     Active Substance: SEMAGLUTIDE
  12. XANAX [Concomitant]
     Active Substance: ALPRAZOLAM
  13. MAGNESIUM [Concomitant]
     Active Substance: MAGNESIUM
  14. one multivitamin [Concomitant]
  15. SODIUM CHLORIDE [Concomitant]
     Active Substance: SODIUM CHLORIDE

REACTIONS (11)
  - Nervousness [None]
  - Hyperphagia [None]
  - Weight increased [None]
  - Withdrawal syndrome [None]
  - Anxiety [None]
  - Crying [None]
  - Suicidal ideation [None]
  - Condition aggravated [None]
  - Paradoxical drug reaction [None]
  - Symptom recurrence [None]
  - Phobia [None]

NARRATIVE: CASE EVENT DATE: 20220727
